FAERS Safety Report 8306439-6 (Version None)
Quarter: 2012Q2

REPORT INFORMATION
  Report Type: 
  Country: None (occurrence: None)
  Receive Date: 20120423
  Receipt Date: 20120419
  Transmission Date: 20120825
  Serious: Yes (Hospitalization)
  Sender: FDA-Public Use
  Company Number: US-BRISTOL-MYERS SQUIBB COMPANY-14536627

PATIENT
  Age: 60 Year
  Sex: Female

DRUGS (9)
  1. ATENOLOL [Concomitant]
  2. PREDNISONE TAB [Concomitant]
  3. ORENCIA [Suspect]
     Indication: RHEUMATOID ARTHRITIS
     Dosage: 25MAY,24JUN,31JUL,02SEP09,01OCT09,28OCT09,03DEC09,04JAN10,01FB10,2MY11,30AG11;22MR12 INFUSION:32
     Route: 042
     Dates: start: 20090203
  4. VITAMIN D [Concomitant]
  5. CALCIUM [Concomitant]
  6. ACTONEL [Concomitant]
  7. VOLTAREN [Concomitant]
  8. METHOTREXATE [Concomitant]
     Dosage: DF=TABLETS 4 TABS TO START TODAY
  9. NORVASC [Concomitant]

REACTIONS (12)
  - INFLUENZA LIKE ILLNESS [None]
  - LARYNGITIS [None]
  - HYPERHIDROSIS [None]
  - RHEUMATOID ARTHRITIS [None]
  - HYPOTENSION [None]
  - PALLOR [None]
  - NASOPHARYNGITIS [None]
  - MUSCULOSKELETAL PAIN [None]
  - MALAISE [None]
  - CHEST PAIN [None]
  - PAINFUL RESPIRATION [None]
  - DIZZINESS [None]
